FAERS Safety Report 23731964 (Version 1)
Quarter: 2024Q2

REPORT INFORMATION
  Report Type: Spontaneous
  Country: US (occurrence: None)
  Receive Date: 20240410
  Receipt Date: 20240410
  Transmission Date: 20240716
  Serious: Yes (Death, Hospitalization)
  Sender: FDA-Public Use
  Company Number: None

PATIENT
  Age: 65 Year
  Sex: Male

DRUGS (15)
  1. TADALAFIL [Suspect]
     Active Substance: TADALAFIL
     Indication: Pulmonary hypertension
     Dosage: 20MG QD ORAL?
     Route: 048
     Dates: start: 20231115, end: 20240328
  2. humulin [Concomitant]
  3. LACTULOSE [Concomitant]
  4. FUROSEMIDE [Concomitant]
  5. VITAMINS [Concomitant]
     Active Substance: VITAMINS
  6. RIFAXIMIN [Concomitant]
  7. PANTOPRAZOLE [Concomitant]
  8. metformide [Concomitant]
  9. VITAMIN A [Concomitant]
     Active Substance: VITAMIN A
  10. ONDANSETRON [Concomitant]
  11. SPIRONOLACTONE [Concomitant]
  12. FERROUS GLUCONATE [Concomitant]
     Active Substance: FERROUS GLUCONATE
  13. CARVEDILOL [Concomitant]
     Active Substance: CARVEDILOL
  14. VITAMIN B12 [Concomitant]
     Active Substance: CYANOCOBALAMIN
  15. CALCIUM CARBONATE [Concomitant]

REACTIONS (8)
  - Hypervolaemia [None]
  - Asthenia [None]
  - Acute kidney injury [None]
  - Encephalopathy [None]
  - Urinary tract infection [None]
  - Oliguria [None]
  - Shock [None]
  - Multiple organ dysfunction syndrome [None]

NARRATIVE: CASE EVENT DATE: 20240304
